FAERS Safety Report 6931875-X (Version None)
Quarter: 2010Q3

REPORT INFORMATION
  Report Type: 
  Country: None (occurrence: None)
  Receive Date: 20100819
  Receipt Date: 20100810
  Transmission Date: 20110219
  Serious: Yes (Hospitalization)
  Sender: FDA-Public Use
  Company Number: JP-PFIZER INC-2010092736

PATIENT
  Age: 41 Year
  Sex: Male
  Weight: 76 kg

DRUGS (8)
  1. SUNITINIB MALATE [Suspect]
     Indication: GASTROINTESTINAL STROMAL TUMOUR
     Dosage: 50 MG, 1X/DAY
     Route: 048
     Dates: start: 20080925, end: 20080929
  2. FERROMIA [Concomitant]
     Dosage: 50 MG, 2X/DAY
     Route: 048
  3. MAGNESIUM OXIDE [Concomitant]
     Indication: PROPHYLAXIS
     Dosage: UNK
     Route: 048
  4. ALLELOCK [Concomitant]
     Indication: PRURITUS
     Dosage: 5 MG, 2X/DAY
     Route: 048
  5. MYSLEE [Concomitant]
     Indication: PROPHYLAXIS
     Dosage: 5 MG, UNK
     Route: 048
  6. LOXOPROFEN [Concomitant]
     Indication: GASTROINTESTINAL STROMAL TUMOUR
     Dosage: 60 MG, 3X/DAY
     Route: 048
  7. SELBEX [Concomitant]
     Indication: PROPHYLAXIS
     Dosage: 50 MG, 3X/DAY
     Route: 048
  8. LASIX [Concomitant]
     Indication: GASTROINTESTINAL STROMAL TUMOUR
     Dosage: 20 MG, 1X/DAY
     Route: 048

REACTIONS (2)
  - PERITONITIS [None]
  - SMALL INTESTINAL PERFORATION [None]
